FAERS Safety Report 14747881 (Version 1)
Quarter: 2018Q2

REPORT INFORMATION
  Report Type: Spontaneous
  Country: JP (occurrence: JP)
  Receive Date: 20180411
  Receipt Date: 20180411
  Transmission Date: 20180711
  Serious: Yes (Death, Hospitalization, Other)
  Sender: FDA-Public Use
  Company Number: JP-SPECTRUM PHARMACEUTICALS, INC.-18-F-JP-00122

PATIENT
  Age: 71 Year
  Sex: Male

DRUGS (3)
  1. FRESMIN S                          /00091801/ [Concomitant]
     Indication: PROPHYLAXIS
     Dosage: UNK
     Route: 042
     Dates: start: 20180306
  2. FOLIAMIN [Concomitant]
     Active Substance: FOLIC ACID
     Indication: PROPHYLAXIS
     Dosage: UNK
     Route: 048
     Dates: start: 20180306
  3. FOLOTYN [Suspect]
     Active Substance: PRALATREXATE
     Indication: PRODUCT USED FOR UNKNOWN INDICATION
     Dosage: 30 MG/M2, SINGLE
     Route: 042
     Dates: start: 20180309, end: 20180309

REACTIONS (2)
  - Stomatitis [Unknown]
  - Disease progression [Fatal]

NARRATIVE: CASE EVENT DATE: 20180316
